FAERS Safety Report 7068741-8 (Version None)
Quarter: 2010Q4

REPORT INFORMATION
  Report Type: 
  Country: None (occurrence: None)
  Receive Date: 20101028
  Receipt Date: 20101021
  Transmission Date: 20110411
  Serious: Yes (Other)
  Sender: FDA-Public Use
  Company Number: US-PFIZER INC-2010134201

PATIENT
  Sex: Male
  Weight: 79.4 kg

DRUGS (10)
  1. VIAGRA [Suspect]
     Indication: ERECTILE DYSFUNCTION
     Dosage: UNK
     Route: 048
  2. VIAGRA [Suspect]
     Indication: PENILE VASCULAR DISORDER
  3. METFORMIN [Concomitant]
     Dosage: 100 MG, 2X/DAY
  4. SITAGLIPTIN [Concomitant]
     Dosage: 100 MG, DAILY
  5. ACETYLSALICYLIC ACID [Concomitant]
     Dosage: 81 MG, 1X/DAY
  6. LISINOPRIL [Concomitant]
     Dosage: 10 MG, 1X/DAY
  7. GLYBURIDE [Concomitant]
     Dosage: 4 MG, 1X/DAY
  8. SIMVASTATIN [Concomitant]
     Dosage: 40 MG, 1X/DAY
  9. VITAMIN B-12 [Concomitant]
     Dosage: UNK
  10. ZINC [Concomitant]
     Dosage: UNK

REACTIONS (4)
  - BLOOD GLUCOSE INCREASED [None]
  - CYANOPSIA [None]
  - EPISTAXIS [None]
  - VISION BLURRED [None]
